FAERS Safety Report 8616236-X (Version None)
Quarter: 2012Q3

REPORT INFORMATION
  Report Type: 
  Country: None (occurrence: None)
  Receive Date: 20120823
  Receipt Date: 20120815
  Transmission Date: 20120928
  Serious: Yes (Hospitalization, Disabling, Other)
  Sender: FDA-Public Use
  Company Number: US-009507513-1106USA02726

PATIENT

DRUGS (8)
  1. FOSAMAX [Suspect]
     Indication: OSTEOPOROSIS
     Route: 048
     Dates: start: 19960101
  2. BONIVA [Suspect]
     Indication: OSTEOPOROSIS
     Dosage: 150 MG, UNK
     Route: 048
     Dates: start: 20050819, end: 20070211
  3. LIPITOR [Concomitant]
     Indication: BLOOD CHOLESTEROL INCREASED
     Route: 048
     Dates: start: 20020310, end: 20120219
  4. FOSAMAX [Suspect]
     Dosage: 70 MG, QW
     Route: 048
     Dates: start: 20001211, end: 20050922
  5. FOSAMAX PLUS D [Suspect]
     Indication: OSTEOPOROSIS
     Dosage: 70 MG, QW
     Route: 048
     Dates: start: 20061226, end: 20090119
  6. SYNTHROID [Concomitant]
     Indication: HYPOTHYROIDISM
     Route: 048
     Dates: start: 20020108, end: 20111214
  7. FOSAMAX [Suspect]
     Dosage: 70 MG, QW
     Route: 048
     Dates: end: 20110501
  8. ACTONEL [Suspect]
     Indication: OSTEOPOROSIS
     Dosage: 150 MG, UNK
     Route: 048
     Dates: start: 20090105, end: 20110730

REACTIONS (31)
  - SINUSITIS [None]
  - PARAESTHESIA [None]
  - OXYGEN SATURATION DECREASED [None]
  - PAIN IN EXTREMITY [None]
  - DYSTHYMIC DISORDER [None]
  - PERSONALITY DISORDER [None]
  - HEPATIC LESION [None]
  - GASTRIC POLYPS [None]
  - WOUND INFECTION STAPHYLOCOCCAL [None]
  - FEMUR FRACTURE [None]
  - WRIST FRACTURE [None]
  - FALL [None]
  - RIB FRACTURE [None]
  - BLOOD DISORDER [None]
  - GASTRIC DISORDER [None]
  - TREATMENT NONCOMPLIANCE [None]
  - INFLAMMATION [None]
  - DYSPHAGIA [None]
  - GASTROOESOPHAGEAL REFLUX DISEASE [None]
  - ADJUSTMENT DISORDER WITH ANXIETY [None]
  - WEIGHT INCREASED [None]
  - ATELECTASIS [None]
  - BODY TEMPERATURE INCREASED [None]
  - BONE DISORDER [None]
  - VITAMIN D DEFICIENCY [None]
  - ATROPHY [None]
  - EYE INFECTION [None]
  - HYPERSENSITIVITY [None]
  - LIMB DISCOMFORT [None]
  - HIATUS HERNIA [None]
  - INFECTION [None]
